FAERS Safety Report 5885356-5 (Version None)
Quarter: 2008Q3

REPORT INFORMATION
  Report Type: 
  Country: None (occurrence: None)
  Receive Date: 20080912
  Receipt Date: 20080828
  Transmission Date: 20090109
  Serious: Yes (Death, Hospitalization, Other)
  Sender: FDA-Public Use
  Company Number: 2008BI015530

PATIENT
  Age: 42 Year
  Sex: Female
  Weight: 65.7716 kg

DRUGS (12)
  1. TYSABRI [Suspect]
     Indication: MULTIPLE SCLEROSIS
     Dosage: 300 MG; QM; IV
     Route: 042
     Dates: start: 20060907, end: 20080529
  2. GABAPENTIN [Concomitant]
  3. CLONAZEPAM [Concomitant]
  4. RIZATRIPTAN BENZOATE [Concomitant]
  5. TIZANIDINE HCL [Concomitant]
  6. IMODIUM [Concomitant]
  7. NYSTATIN [Concomitant]
  8. NASONEX SPRAY [Concomitant]
  9. DUONEB [Concomitant]
  10. LEVOTHYROXINE SODIUM [Concomitant]
  11. MULTI-VITAMINS [Concomitant]
  12. FOLIC ACID [Concomitant]

REACTIONS (27)
  - ACIDOSIS [None]
  - ANXIETY [None]
  - ARTERIOSCLEROSIS [None]
  - BACK PAIN [None]
  - BALANCE DISORDER [None]
  - BLOOD CALCIUM DECREASED [None]
  - BLOOD CREATINE INCREASED [None]
  - BRAIN OEDEMA [None]
  - BRAIN STEM HAEMORRHAGE [None]
  - COGNITIVE DISORDER [None]
  - DIZZINESS [None]
  - DRUG SCREEN POSITIVE [None]
  - EXPRESSIVE LANGUAGE DISORDER [None]
  - FEELING ABNORMAL [None]
  - HEADACHE [None]
  - HEPATIC ENZYME INCREASED [None]
  - INSOMNIA [None]
  - MYOCARDIAL INFARCTION [None]
  - OPTIC NEURITIS [None]
  - PULMONARY HYPERTENSION [None]
  - PULSE ABSENT [None]
  - PUPIL FIXED [None]
  - RESPIRATORY FAILURE [None]
  - STRESS [None]
  - SUDDEN DEATH [None]
  - UNRESPONSIVE TO STIMULI [None]
  - VISUAL IMPAIRMENT [None]
